FAERS Safety Report 15572340 (Version 2)
Quarter: 2019Q1

REPORT INFORMATION
  Report Type: Spontaneous
  Country: PT (occurrence: PT)
  Receive Date: 20181031
  Receipt Date: 20190301
  Transmission Date: 20190417
  Serious: Yes (Death, Life-Threatening, Other)
  Sender: FDA-Public Use
  Company Number: PT-MYLANLABS-2018M1081595

PATIENT
  Age: 29 Year
  Sex: Female

DRUGS (12)
  1. VINCRISTINE SULFATE. [Suspect]
     Active Substance: VINCRISTINE SULFATE
     Indication: CENTRAL NERVOUS SYSTEM LYMPHOMA
     Dosage: 1, CYCLE
     Route: 065
  2. HYDROCORTISONE. [Concomitant]
     Active Substance: HYDROCORTISONE
     Indication: HORMONE REPLACEMENT THERAPY
     Dosage: 25 MG, QD
     Route: 065
  3. RALTEGRAVIR. [Concomitant]
     Active Substance: RALTEGRAVIR
     Indication: HIV INFECTION
     Dosage: UNK
     Route: 065
  4. CYCLOPHOSPHAMIDE. [Suspect]
     Active Substance: CYCLOPHOSPHAMIDE
     Indication: CENTRAL NERVOUS SYSTEM LYMPHOMA
     Dosage: 1, CYCLE
     Route: 065
  5. RITUXIMAB. [Suspect]
     Active Substance: RITUXIMAB
     Indication: CENTRAL NERVOUS SYSTEM LYMPHOMA
     Dosage: 1, CYCLE
     Route: 065
  6. LAMIVUDINE. [Concomitant]
     Active Substance: LAMIVUDINE
     Indication: HIV INFECTION
     Dosage: UNK
     Route: 065
  7. ABACAVIR. [Concomitant]
     Active Substance: ABACAVIR
     Indication: HIV INFECTION
     Dosage: UNK
     Route: 065
  8. LEVOTHYROXINE. [Concomitant]
     Active Substance: LEVOTHYROXINE
     Indication: PRODUCT USED FOR UNKNOWN INDICATION
     Dosage: 75 ?G, QD
     Route: 065
  9. METHOTREXATE. [Suspect]
     Active Substance: METHOTREXATE
     Indication: CENTRAL NERVOUS SYSTEM LYMPHOMA
     Dosage: 9, CYCLE
     Route: 037
  10. DOXORUBICIN [Suspect]
     Active Substance: DOXORUBICIN
     Indication: CENTRAL NERVOUS SYSTEM LYMPHOMA
     Dosage: 1, CYCLE
     Route: 065
  11. DESMOPRESSIN [Concomitant]
     Active Substance: DESMOPRESSIN
     Dosage: TWICE DAILY AND AS NEEDED
     Route: 045
  12. PREDNISOLONE. [Suspect]
     Active Substance: PREDNISOLONE
     Indication: CENTRAL NERVOUS SYSTEM LYMPHOMA
     Dosage: 1, CYCLE
     Route: 065

REACTIONS (6)
  - Disseminated intravascular coagulation [Fatal]
  - Mucosal inflammation [Fatal]
  - Overdose [Unknown]
  - Toxicity to various agents [Fatal]
  - Septic shock [Fatal]
  - Drug abuse [Unknown]
